FAERS Safety Report 10028350 (Version 1)
Quarter: 2014Q1

REPORT INFORMATION
  Report Type: Report from Study
  Country: KR (occurrence: KR)
  Receive Date: 20140321
  Receipt Date: 20140321
  Transmission Date: 20141002
  Serious: Yes (Hospitalization)
  Sender: FDA-Public Use
  Company Number: KR-SA-2014SA030547

PATIENT
  Age: 80 Year
  Sex: Female
  Weight: 54 kg

DRUGS (2)
  1. LANTUS [Suspect]
     Indication: DIABETES MELLITUS
     Dosage: DOSE:10 UNIT(S)
     Route: 058
     Dates: start: 20140106
  2. CORTICOSTEROID NOS [Concomitant]
     Indication: THROMBOCYTOPENIA

REACTIONS (2)
  - Cerebral infarction [Unknown]
  - Pneumonia [Unknown]
